FAERS Safety Report 9677575 (Version 2)
Quarter: 2013Q4

REPORT INFORMATION
  Report Type: Spontaneous
  Country: FR (occurrence: FR)
  Receive Date: 20131108
  Receipt Date: 20131220
  Transmission Date: 20140711
  Serious: Yes (Hospitalization)
  Sender: FDA-Public Use
  Company Number: FR-ROCHE-1297160

PATIENT
  Age: 54 Year
  Sex: Female
  Weight: 60 kg

DRUGS (3)
  1. AVASTIN [Suspect]
     Indication: GLIOBLASTOMA
     Dosage: DOSE WAS 10 TO 15 MG/KG
     Route: 065
     Dates: start: 20121114, end: 20130614
  2. TEMODAL [Concomitant]
  3. MUPHORAN [Concomitant]
     Indication: GLIOBLASTOMA
     Route: 042
     Dates: start: 201211, end: 201306

REACTIONS (3)
  - Autoimmune haemolytic anaemia [Recovering/Resolving]
  - Haemolytic anaemia [Recovering/Resolving]
  - Deep vein thrombosis [Unknown]
